FAERS Safety Report 9491957 (Version 2)
Quarter: 2013Q3

REPORT INFORMATION
  Report Type: Spontaneous
  Country: AR (occurrence: None)
  Receive Date: 20130827
  Receipt Date: 20130905
  Transmission Date: 20140515
  Serious: Yes (Other)
  Sender: FDA-Public Use
  Company Number: VAL_02692_2013

PATIENT
  Age: 69 Year
  Sex: Male

DRUGS (1)
  1. PARLODEL [Suspect]
     Indication: BRAIN NEOPLASM
     Route: 048
     Dates: start: 2009, end: 20130730

REACTIONS (4)
  - Headache [None]
  - Pain [None]
  - Hyperhidrosis [None]
  - Tumour haemorrhage [None]
